FAERS Safety Report 10080095 (Version 2)
Quarter: 2014Q2

REPORT INFORMATION
  Report Type: Spontaneous
  Country: PL (occurrence: PL)
  Receive Date: 20140415
  Receipt Date: 20140415
  Transmission Date: 20141212
  Serious: Yes (Hospitalization)
  Sender: FDA-Public Use
  Company Number: PHHY2014PL042007

PATIENT
  Age: 31 Year
  Sex: Male

DRUGS (2)
  1. CICLOSPORIN [Suspect]
  2. ACITRETIN [Suspect]

REACTIONS (2)
  - Dermatitis exfoliative [Unknown]
  - Drug ineffective [Unknown]
